FAERS Safety Report 12400746 (Version 1)
Quarter: 2016Q2

REPORT INFORMATION
  Report Type: Spontaneous
  Country: US (occurrence: None)
  Receive Date: 20160524
  Receipt Date: 20160524
  Transmission Date: 20160815
  Serious: Yes (Other)
  Sender: FDA-Public Use
  Company Number: None

PATIENT
  Age: 67 Year
  Sex: Male
  Weight: 86.18 kg

DRUGS (9)
  1. CARVEDILOL. [Concomitant]
     Active Substance: CARVEDILOL
  2. ACETAMINOPHEN\HYDROCODONE BITARTRATE [Concomitant]
     Active Substance: ACETAMINOPHEN\HYDROCODONE BITARTRATE
  3. PRALUENT [Suspect]
     Active Substance: ALIROCUMAB
     Indication: BLOOD CHOLESTEROL ABNORMAL
     Dosage: 150MG/ML SUBCUTANEOUS INJECTION 2 X MONTH
     Route: 058
     Dates: start: 20160101, end: 20160501
  4. IMPLANT DIFULATOR [Concomitant]
  5. CLOPIDOGREL [Concomitant]
     Active Substance: CLOPIDOGREL BISULFATE
  6. PRILOCET [Concomitant]
  7. LISINPRIL [Concomitant]
  8. TRAMADOL. [Concomitant]
     Active Substance: TRAMADOL
  9. ALPRAZOLAM. [Concomitant]
     Active Substance: ALPRAZOLAM

REACTIONS (8)
  - Myalgia [None]
  - Gastrointestinal pain [None]
  - Constipation [None]
  - Diarrhoea [None]
  - Arthralgia [None]
  - Fatigue [None]
  - Weight increased [None]
  - Pain [None]

NARRATIVE: CASE EVENT DATE: 201601
